FAERS Safety Report 8873989 (Version 2)
Quarter: 2013Q1

REPORT INFORMATION
  Report Type: Spontaneous
  Country: US (occurrence: US)
  Receive Date: 20121029
  Receipt Date: 20130219
  Transmission Date: 20140127
  Serious: Yes (Hospitalization)
  Sender: FDA-Public Use
  Company Number: US-BAYER-2012-113060

PATIENT
  Age: 26 Year
  Sex: Female
  Weight: 85.26 kg

DRUGS (4)
  1. YAZ [Suspect]
     Indication: CONTRACEPTION
     Dosage: UNK
     Dates: start: 2007, end: 2009
  2. YAZ [Suspect]
     Indication: MENSTRUATION IRREGULAR
     Dosage: UNK
     Dates: start: 2007, end: 2010
  3. PRENATAL VITAMINS [Concomitant]
  4. AMOXICILLIN [Concomitant]

REACTIONS (8)
  - Cardiac failure congestive [None]
  - Left ventricular dysfunction [None]
  - Depression [None]
  - Injury [None]
  - Pain [None]
  - Emotional distress [None]
  - Anxiety [None]
  - Psychological trauma [None]
